FAERS Safety Report 18200251 (Version 30)
Quarter: 2022Q3

REPORT INFORMATION
  Report Type: Report from Study
  Country: US (occurrence: US)
  Receive Date: 20200826
  Receipt Date: 20220823
  Transmission Date: 20221026
  Serious: Yes (Hospitalization, Other)
  Sender: FDA-Public Use
  Company Number: US-NOVARTISPH-NVSC2020US236194

PATIENT
  Age: 59 Year
  Sex: Female

DRUGS (1)
  1. ADAKVEO [Suspect]
     Active Substance: CRIZANLIZUMAB-TMCA
     Indication: Sickle cell disease
     Dosage: UNK, QMO
     Route: 042
     Dates: start: 20200821

REACTIONS (25)
  - Mobility decreased [Unknown]
  - Arthralgia [Unknown]
  - Full blood count decreased [Recovering/Resolving]
  - Sickle cell anaemia with crisis [Unknown]
  - Discomfort [Recovered/Resolved]
  - Blood pressure difference of extremities [Unknown]
  - Bone pain [Recovered/Resolved]
  - Pelvic pain [Unknown]
  - Fatigue [Recovered/Resolved]
  - Asthenia [Recovered/Resolved]
  - Pain [Unknown]
  - Arthralgia [Recovered/Resolved]
  - Breast calcifications [Unknown]
  - Weight increased [Unknown]
  - Fatigue [Unknown]
  - Joint noise [Unknown]
  - Gait disturbance [Unknown]
  - Poor venous access [Unknown]
  - Feeling abnormal [Unknown]
  - Pain in extremity [Unknown]
  - Sensitivity to weather change [Unknown]
  - Nasopharyngitis [Unknown]
  - Back pain [Unknown]
  - Injection site pain [Unknown]
  - Product supply issue [Unknown]

NARRATIVE: CASE EVENT DATE: 20200821
